FAERS Safety Report 26135934 (Version 1)
Quarter: 2025Q4

REPORT INFORMATION
  Report Type: Spontaneous
  Country: EU (occurrence: EU)
  Receive Date: 20251209
  Receipt Date: 20251209
  Transmission Date: 20260117
  Serious: Yes (Hospitalization, Other)
  Sender: ASTELLAS
  Company Number: EU-ASTELLAS-2025-AER-066343

PATIENT
  Age: 63 Year
  Sex: Male

DRUGS (2)
  1. XOSPATA [Suspect]
     Active Substance: GILTERITINIB
     Indication: Acute myeloid leukaemia recurrent
     Route: 065
     Dates: start: 202003
  2. XOSPATA [Suspect]
     Active Substance: GILTERITINIB
     Dosage: MAINTENANCE
     Route: 065

REACTIONS (4)
  - Atrial flutter [Unknown]
  - Septic shock [Unknown]
  - Fungaemia [Unknown]
  - Pancytopenia [Unknown]

NARRATIVE: CASE EVENT DATE: 20200101
